FAERS Safety Report 10913433 (Version 3)
Quarter: 2015Q2

REPORT INFORMATION
  Report Type: Spontaneous
  Country: US (occurrence: US)
  Receive Date: 20150313
  Receipt Date: 20150622
  Transmission Date: 20150821
  Serious: Yes (Hospitalization)
  Sender: FDA-Public Use
  Company Number: US-BAYER-2015-036460

PATIENT
  Age: 23 Year
  Sex: Female
  Weight: 61.22 kg

DRUGS (2)
  1. MIRENA [Suspect]
     Active Substance: LEVONORGESTREL
     Indication: CONTRACEPTION
     Dosage: 20 MCG/24HR, CONT
     Route: 015
     Dates: start: 20130314, end: 20130606
  2. LOESTRIN FE 1/20 [Concomitant]
     Active Substance: ETHINYL ESTRADIOL\NORETHINDRONE ACETATE

REACTIONS (6)
  - Pelvic pain [None]
  - Menstruation irregular [None]
  - Injury [None]
  - Device issue [None]
  - Uterine perforation [None]
  - Device dislocation [None]

NARRATIVE: CASE EVENT DATE: 201303
